FAERS Safety Report 4951108-3 (Version None)
Quarter: 2006Q1

REPORT INFORMATION
  Report Type: 
  Country: None (occurrence: None)
  Receive Date: 20060315
  Receipt Date: 20060221
  Transmission Date: 20060701
  Serious: Yes (Hospitalization)
  Sender: FDA-Public Use
  Company Number: JP200601004356

PATIENT
  Age: 68 Year
  Sex: Female
  Weight: 43 kg

DRUGS (3)
  1. RALOXIFENE HCL [Suspect]
     Indication: OSTEOPOROSIS POSTMENOPAUSAL
     Dosage: 60 MG DAILY (1/D) ORAL
     Route: 048
     Dates: start: 20050604, end: 20050802
  2. RHEUMATREX [Concomitant]
  3. PRELONS (PREDNISOLONE) [Concomitant]

REACTIONS (2)
  - CELL MARKER INCREASED [None]
  - PNEUMONITIS [None]
